FAERS Safety Report 4363613-1 (Version None)
Quarter: 2004Q2

REPORT INFORMATION
  Report Type: 
  Country: None (occurrence: None)
  Receive Date: 20040524
  Receipt Date: 20040524
  Transmission Date: 20050107
  Serious: Yes (Other)
  Sender: FDA-Public Use
  Company Number: None

PATIENT
  Sex: Female
  Weight: 90.7194 kg

DRUGS (2)
  1. ZOLOFT [Suspect]
     Indication: ANXIETY
     Dosage: 25MG ONCE A DAY ORAL
     Route: 048
     Dates: start: 20040415, end: 20040417
  2. ZOLOFT [Suspect]
     Indication: DEPRESSION
     Dosage: 25MG ONCE A DAY ORAL
     Route: 048
     Dates: start: 20040415, end: 20040417

REACTIONS (10)
  - FEAR [None]
  - HEART RATE INCREASED [None]
  - HYPOAESTHESIA [None]
  - IMPAIRED WORK ABILITY [None]
  - INSOMNIA [None]
  - PARAESTHESIA [None]
  - POLLAKIURIA [None]
  - SEROTONIN SYNDROME [None]
  - THIRST [None]
  - TREMOR [None]
